FAERS Safety Report 15691018 (Version 1)
Quarter: 2018Q4

REPORT INFORMATION
  Report Type: Spontaneous
  Country: ES (occurrence: ES)
  Receive Date: 20181205
  Receipt Date: 20181205
  Transmission Date: 20190205
  Serious: Yes (Hospitalization, Other)
  Sender: FDA-Public Use
  Company Number: ES-PFIZER INC-2018491718

PATIENT
  Age: 45 Year
  Sex: Male

DRUGS (1)
  1. SUNITINIB MALATE. [Suspect]
     Active Substance: SUNITINIB MALATE
     Dosage: 50 MG/DAY, CYCLIC (4 WEEKS ON/2 WEEKS OFF)
     Dates: start: 200812

REACTIONS (6)
  - Hypertension [Unknown]
  - Diarrhoea [Unknown]
  - Hypothyroidism [Unknown]
  - Cholecystitis acute [Unknown]
  - Neoplasm progression [Unknown]
  - Abscess [Unknown]

NARRATIVE: CASE EVENT DATE: 200904
